FAERS Safety Report 8483592-5 (Version None)
Quarter: 2012Q3

REPORT INFORMATION
  Report Type: 
  Country: None (occurrence: None)
  Receive Date: 20120702
  Receipt Date: 20120627
  Transmission Date: 20120928
  Serious: Yes (Hospitalization, Disabling)
  Sender: FDA-Public Use
  Company Number: US-MERCK-0202USA02118

PATIENT
  Age: 52 Year
  Sex: Female
  Weight: 49 kg

DRUGS (10)
  1. SYNTHROID [Concomitant]
     Indication: HYPOTHYROIDISM
     Route: 048
     Dates: start: 19960101
  2. LEVOTHROID [Concomitant]
     Route: 065
  3. FOSAMAX [Suspect]
     Route: 048
     Dates: start: 20030701, end: 20040401
  4. OGEN [Concomitant]
     Route: 065
  5. PRINZIDE [Concomitant]
     Route: 065
  6. FOSAMAX [Suspect]
     Indication: OSTEOPOROSIS
     Route: 048
     Dates: start: 19960101, end: 20031001
  7. ESTRADERM [Concomitant]
     Route: 065
  8. FOSAMAX [Suspect]
     Route: 048
     Dates: end: 20080101
  9. CYCRIN [Concomitant]
     Route: 065
  10. PREMPRO [Concomitant]
     Indication: MENOPAUSAL SYMPTOMS
     Route: 065
     Dates: start: 19970101

REACTIONS (27)
  - FACET JOINT SYNDROME [None]
  - DYSPEPSIA [None]
  - CALCIUM DEFICIENCY [None]
  - SOMNOLENCE [None]
  - MYALGIA [None]
  - LOW TURNOVER OSTEOPATHY [None]
  - PRURITUS [None]
  - DRUG SCREEN POSITIVE [None]
  - ABDOMINAL PAIN UPPER [None]
  - DRUG INEFFECTIVE [None]
  - HAEMORRHAGIC ANAEMIA [None]
  - OSTEOPOROSIS [None]
  - DECREASED APPETITE [None]
  - HYPERTENSION [None]
  - OROPHARYNGEAL PAIN [None]
  - NAUSEA [None]
  - VITAMIN D DEFICIENCY [None]
  - ORAL DISORDER [None]
  - SPINAL OSTEOARTHRITIS [None]
  - HYPOCALCAEMIA [None]
  - ALOPECIA [None]
  - THROMBOCYTOPENIA [None]
  - TOOTH DISORDER [None]
  - BONE DENSITY DECREASED [None]
  - FEMUR FRACTURE [None]
  - STRESS FRACTURE [None]
  - ARTHRALGIA [None]
